FAERS Safety Report 11513268 (Version 1)
Quarter: 2015Q3

REPORT INFORMATION
  Report Type: Spontaneous
  Country: US (occurrence: US)
  Receive Date: 20150903
  Receipt Date: 20150903
  Transmission Date: 20151125
  Serious: No
  Sender: FDA-Public Use
  Company Number: US-ELI_LILLY_AND_COMPANY-US201210006560

PATIENT
  Age: 49 Year
  Sex: Male

DRUGS (1)
  1. CYMBALTA [Suspect]
     Active Substance: DULOXETINE HYDROCHLORIDE
     Indication: GENERALISED ANXIETY DISORDER
     Dosage: 20 MG, BID
     Dates: start: 201203

REACTIONS (5)
  - Dizziness [Unknown]
  - Drug dose omission [Unknown]
  - Anxiety [Unknown]
  - Tinnitus [Unknown]
  - Feeling abnormal [Unknown]
